FAERS Safety Report 8829479 (Version 1)
Quarter: 2012Q4

REPORT INFORMATION
  Report Type: 
  Country: US (occurrence: US)
  Receive Date: 20121008
  Receipt Date: 20121008
  Transmission Date: 20130627
  Serious: No
  Sender: FDA-Public Use
  Company Number: US-TEVA-336081USA

PATIENT
  Age: 0 Year
  Sex: Male

DRUGS (3)
  1. QVAR [Suspect]
     Indication: RHINOVIRUS INFECTION
     Dosage: 40 Microgram Daily;
     Route: 055
     Dates: start: 20120417
  2. RANITIDINE HYDROCHLORIDE [Concomitant]
  3. LEVOSALBUTAMOL [Concomitant]
     Indication: WHEEZING

REACTIONS (5)
  - Decreased appetite [Recovered/Resolved]
  - Frequent bowel movements [Not Recovered/Not Resolved]
  - Abnormal loss of weight [Not Recovered/Not Resolved]
  - Drug administered to patient of inappropriate age [Unknown]
  - Off label use [Unknown]
